FAERS Safety Report 21671441 (Version 1)
Quarter: 2022Q4

REPORT INFORMATION
  Report Type: Report from Study
  Country: US (occurrence: US)
  Receive Date: 20221202
  Receipt Date: 20221202
  Transmission Date: 20230113
  Serious: No
  Sender: FDA-Public Use
  Company Number: US-ABBVIE-4173323

PATIENT
  Age: 17 Year
  Sex: Male

DRUGS (1)
  1. HUMIRA [Suspect]
     Active Substance: ADALIMUMAB
     Indication: Product used for unknown indication
     Dosage: STRENGTH: 40 MILLIGRAM.?EVENT CESSATION DATE FOR LETHARGY AND FACIAL FLUSHING: OCT 2022.
     Route: 058
     Dates: start: 20221019

REACTIONS (3)
  - Fatigue [Recovered/Resolved]
  - Lethargy [Recovered/Resolved]
  - Flushing [Recovered/Resolved]

NARRATIVE: CASE EVENT DATE: 20221019
